FAERS Safety Report 5263431-6 (Version None)
Quarter: 2007Q1

REPORT INFORMATION
  Report Type: 
  Country: None (occurrence: None)
  Receive Date: 20070313
  Receipt Date: 20070228
  Transmission Date: 20070707
  Serious: Yes (Disabling, Other)
  Sender: FDA-Public Use
  Company Number: 2007SE00982

PATIENT
  Age: 9868 Day
  Sex: Female
  Weight: 68 kg

DRUGS (2)
  1. ATACAND [Suspect]
     Indication: MIGRAINE
     Route: 048
     Dates: start: 20050804, end: 20050810
  2. ATACAND [Suspect]
     Route: 048
     Dates: start: 20050811, end: 20051013

REACTIONS (4)
  - ABDOMINAL PAIN [None]
  - BACK PAIN [None]
  - ENTEROCOLITIS HAEMORRHAGIC [None]
  - RECTAL HAEMORRHAGE [None]
